FAERS Safety Report 5627975-7 (Version None)
Quarter: 2008Q1

REPORT INFORMATION
  Report Type: 
  Country: None (occurrence: None)
  Receive Date: 20080215
  Receipt Date: 20021121
  Transmission Date: 20080703
  Serious: Yes (Hospitalization)
  Sender: FDA-Public Use
  Company Number: AU-ELI_LILLY_AND_COMPANY-AU_021105701

PATIENT
  Sex: Female

DRUGS (2)
  1. HUMATROPE [Suspect]
     Indication: ENCEPHALOCELE
     Dosage: 9 MG, 6 TIMES WEEKLY
     Route: 058
     Dates: start: 19920720
  2. DDAVP (NEEDS NO REFRIGERATION) [Concomitant]
     Dosage: 10 UG, EVERY NIGHT

REACTIONS (1)
  - POLYDIPSIA [None]
